FAERS Safety Report 6057866-1 (Version None)
Quarter: 2009Q1

REPORT INFORMATION
  Report Type: 
  Country: None (occurrence: None)
  Receive Date: 20090129
  Receipt Date: 20090121
  Transmission Date: 20090719
  Serious: Yes (Life-Threatening)
  Sender: FDA-Public Use
  Company Number: US-ABBOTT-09P-163-0500029-00

PATIENT
  Age: 17 Year
  Sex: Female

DRUGS (4)
  1. RITONAVIR SOFT GELATIN CAPSULES [Suspect]
     Indication: HIV INFECTION
     Route: 048
  2. REYATAZ [Suspect]
     Indication: HIV INFECTION
     Route: 048
  3. TRUVADA [Suspect]
     Indication: HIV INFECTION
  4. RALTEGRAVIR [Suspect]
     Indication: HIV INFECTION

REACTIONS (1)
  - HEPATIC FAILURE [None]
